FAERS Safety Report 7746995-X (Version None)
Quarter: 2011Q3

REPORT INFORMATION
  Report Type: 
  Country: None (occurrence: None)
  Receive Date: 20110913
  Receipt Date: 20110906
  Transmission Date: 20111222
  Serious: Yes (Other)
  Sender: FDA-Public Use
  Company Number: PHHY2011DK79941

PATIENT
  Sex: Female
  Weight: 33 kg

DRUGS (2)
  1. VOLTAREN [Suspect]
     Indication: ABDOMINAL PAIN
     Dosage: 37.5 MG, TID
     Route: 054
     Dates: start: 20110802
  2. ACETAMINOPHEN [Concomitant]
     Indication: ABDOMINAL PAIN
     Dosage: 1.5 MG, UNK
     Dates: start: 20110802, end: 20110802

REACTIONS (2)
  - NEPHROPATHY TOXIC [None]
  - BLOOD CREATININE INCREASED [None]
